FAERS Safety Report 6188536-7 (Version None)
Quarter: 2009Q2

REPORT INFORMATION
  Report Type: 
  Country: None (occurrence: None)
  Receive Date: 20090511
  Receipt Date: 20090430
  Transmission Date: 20091009
  Serious: Yes (Hospitalization)
  Sender: FDA-Public Use
  Company Number: 006336

PATIENT
  Age: 54 Year
  Sex: Male

DRUGS (3)
  1. BUSULFEX [Suspect]
     Indication: STEM CELL TRANSPLANT
     Dosage: INTRAVENOUS
     Dates: start: 20090301
  2. FLUDARABINE PHOSPHATE [Suspect]
     Indication: STEM CELL TRANSPLANT
     Dosage: INTRAVENOUS
     Route: 042
     Dates: start: 20090301
  3. ANTILYMPHOCYTE SERUM (ANTILYMPHOCYTE SERUM) [Concomitant]

REACTIONS (2)
  - GRAFT VERSUS HOST DISEASE [None]
  - STEVENS-JOHNSON SYNDROME [None]
